FAERS Safety Report 4666186-9 (Version None)
Quarter: 2005Q2

REPORT INFORMATION
  Report Type: 
  Country: None (occurrence: None)
  Receive Date: 20050517
  Receipt Date: 20050517
  Transmission Date: 20051028
  Serious: Yes (Disabling)
  Sender: FDA-Public Use
  Company Number: None

PATIENT
  Age: 23 Year
  Sex: Male
  Weight: 68.0396 kg

DRUGS (3)
  1. LEVAQUIN [Suspect]
     Indication: BRONCHITIS
     Dosage: 500MG   ONCE/DAY   ORAL
     Route: 048
     Dates: start: 20041202, end: 20041227
  2. LEVAQUIN [Suspect]
     Indication: SINUSITIS
     Dosage: 500MG   ONCE/DAY   ORAL
     Route: 048
     Dates: start: 20041202, end: 20041227
  3. DICYCLOMINE [Concomitant]

REACTIONS (30)
  - AFFECTIVE DISORDER [None]
  - AMNESIA [None]
  - ARTHRALGIA [None]
  - ARTHROPATHY [None]
  - COGNITIVE DISORDER [None]
  - DEPRESSION [None]
  - DISORIENTATION [None]
  - DISTURBANCE IN ATTENTION [None]
  - DIZZINESS [None]
  - EAR DISCOMFORT [None]
  - FATIGUE [None]
  - FEELING ABNORMAL [None]
  - GENERALISED ANXIETY DISORDER [None]
  - HEADACHE [None]
  - INSOMNIA [None]
  - JOINT CREPITATION [None]
  - MOVEMENT DISORDER [None]
  - MUSCLE SPASMS [None]
  - MYALGIA [None]
  - NEUROPATHY [None]
  - PAIN IN EXTREMITY [None]
  - PALPITATIONS [None]
  - PARAESTHESIA [None]
  - PLANTAR FASCIITIS [None]
  - SKIN BURNING SENSATION [None]
  - SLEEP DISORDER [None]
  - SPEECH DISORDER [None]
  - TENDON DISORDER [None]
  - TENDONITIS [None]
  - TINNITUS [None]
